FAERS Safety Report 4501980-6 (Version None)
Quarter: 2004Q4

REPORT INFORMATION
  Report Type: 
  Country: None (occurrence: None)
  Receive Date: 20041115
  Receipt Date: 20041115
  Transmission Date: 20050328
  Serious: No
  Sender: FDA-Public Use
  Company Number: None

PATIENT
  Age: 87 Year
  Sex: Female
  Weight: 59 kg

DRUGS (1)
  1. REMERON [Suspect]
     Indication: DEPRESSION
     Dosage: 30 MG ONCE DAILY ORAL
     Route: 048
     Dates: start: 20011101, end: 20041108

REACTIONS (7)
  - DIZZINESS [None]
  - DYSPNOEA [None]
  - ELECTROCARDIOGRAM AMBULATORY ABNORMAL [None]
  - ELECTROCARDIOGRAM QT PROLONGED [None]
  - PALPITATIONS [None]
  - TORSADE DE POINTES [None]
  - VENTRICULAR TACHYCARDIA [None]
